FAERS Safety Report 24766547 (Version 2)
Quarter: 2025Q1

REPORT INFORMATION
  Report Type: Spontaneous
  Country: EE (occurrence: EE)
  Receive Date: 20241223
  Receipt Date: 20250102
  Transmission Date: 20250409
  Serious: Yes (Other)
  Sender: ABBVIE
  Company Number: EE-ABBVIE-6055749

PATIENT
  Age: 35 Year
  Sex: Male
  Weight: 105 kg

DRUGS (4)
  1. SKYRIZI [Suspect]
     Active Substance: RISANKIZUMAB-RZAA
     Indication: Crohn^s disease
     Route: 058
     Dates: start: 202405
  2. SKYRIZI [Suspect]
     Active Substance: RISANKIZUMAB-RZAA
     Route: 058
     Dates: start: 20240819
  3. BUDESONIDE [Concomitant]
     Active Substance: BUDESONIDE
     Indication: Allergic respiratory disease
     Route: 055
     Dates: start: 20241112
  4. SKYRIZI [Suspect]
     Active Substance: RISANKIZUMAB-RZAA
     Indication: Crohn^s disease
     Route: 042
     Dates: start: 20240521

REACTIONS (1)
  - Autoimmune pancreatitis [Not Recovered/Not Resolved]

NARRATIVE: CASE EVENT DATE: 20241129
